FAERS Safety Report 18219265 (Version 2)
Quarter: 2020Q3

REPORT INFORMATION
  Report Type: Spontaneous
  Country: US (occurrence: US)
  Receive Date: 20200901
  Receipt Date: 20200920
  Transmission Date: 20201103
  Serious: Yes (Hospitalization, Other)
  Sender: FDA-Public Use
  Company Number: US-TEVA-2020-US-1821476

PATIENT
  Age: 61 Year
  Sex: Male

DRUGS (1)
  1. METHOTREXATE. [Suspect]
     Active Substance: METHOTREXATE
     Indication: RHEUMATOID ARTHRITIS
     Route: 065

REACTIONS (8)
  - Myelosuppression [Recovered/Resolved]
  - Vasculitis [Unknown]
  - Purpura [Recovering/Resolving]
  - Inflammation [Unknown]
  - Haemorrhage [Unknown]
  - Neutropenia [Recovered/Resolved]
  - Toxicity to various agents [Recovering/Resolving]
  - Thrombocytopenia [Recovered/Resolved]
